FAERS Safety Report 10216549 (Version 7)
Quarter: 2016Q2

REPORT INFORMATION
  Report Type: Spontaneous
  Country: US (occurrence: US)
  Receive Date: 20140604
  Receipt Date: 20160408
  Transmission Date: 20160815
  Serious: No
  Sender: FDA-Public Use
  Company Number: US-009507513-1405USA015538

PATIENT
  Sex: Male
  Weight: 179 kg

DRUGS (6)
  1. FINASTERIDE. [Suspect]
     Active Substance: FINASTERIDE
     Indication: BENIGN PROSTATIC HYPERPLASIA
     Dosage: 5 MG, UNK
     Route: 048
     Dates: start: 20010806, end: 20030905
  2. PROSCAR [Suspect]
     Active Substance: FINASTERIDE
     Indication: BENIGN PROSTATIC HYPERPLASIA
     Dosage: 5 MG, QD
     Route: 048
     Dates: start: 20010806, end: 20030905
  3. LISINOPRIL (+) HYDROCHLOROTHIAZIDE [Concomitant]
     Active Substance: HYDROCHLOROTHIAZIDE\LISINOPRIL
     Indication: HYPERTENSION
     Dosage: UNK
     Route: 048
     Dates: start: 1993
  4. FINASTERIDE. [Suspect]
     Active Substance: FINASTERIDE
     Dosage: 5 MG, QD
     Route: 048
     Dates: start: 199602, end: 20110518
  5. FINASTERIDE. [Suspect]
     Active Substance: FINASTERIDE
     Indication: BENIGN PROSTATIC HYPERPLASIA
     Dosage: 5 MG, QD
     Route: 048
     Dates: start: 200608, end: 2011
  6. PROSCAR [Suspect]
     Active Substance: FINASTERIDE
     Dosage: 5 MG, UNK
     Route: 048
     Dates: start: 199602, end: 20110518

REACTIONS (6)
  - Dyslipidaemia [Unknown]
  - Erectile dysfunction [Not Recovered/Not Resolved]
  - Sexual dysfunction [Not Recovered/Not Resolved]
  - Drug ineffective [Unknown]
  - Loss of libido [Not Recovered/Not Resolved]
  - Gynaecomastia [Not Recovered/Not Resolved]

NARRATIVE: CASE EVENT DATE: 1998
